FAERS Safety Report 6932211-5 (Version None)
Quarter: 2010Q3

REPORT INFORMATION
  Report Type: 
  Country: None (occurrence: None)
  Receive Date: 20100819
  Receipt Date: 20100805
  Transmission Date: 20110219
  Serious: Yes (Hospitalization)
  Sender: FDA-Public Use
  Company Number: JP-ROCHE-719263

PATIENT
  Sex: Female

DRUGS (13)
  1. TRASTUZUMAB [Suspect]
     Dosage: DOSAGE FORM: INFUSION
     Route: 042
     Dates: start: 20100224
  2. PERTUZUMAB [Suspect]
     Dosage: DOSAGE FORM: INFUSION
     Route: 042
     Dates: start: 20100223
  3. DOCETAXEL [Suspect]
     Dosage: DOSAGE FORM: INFUSION, DOSE AS PER PROTOCOL
     Route: 042
     Dates: start: 20100224
  4. METOCLOPRAMIDE [Concomitant]
     Dates: start: 20100302
  5. TEPRENONE [Concomitant]
     Dates: start: 20100302
  6. LANSOPRAZOLE [Concomitant]
     Dates: start: 20100308
  7. FERROUS SULFATE TAB [Concomitant]
     Dosage: DRUG NAME: DRIED FERROUS SULPHATE
     Dates: start: 20100526
  8. FUROSEMIDE [Concomitant]
     Dates: start: 20100609
  9. OXYCODONE HCL [Concomitant]
     Dosage: DRUG REPORTED AS OXYCODONE HYDROCHLORIDE HYDRAT
     Dates: start: 20100219
  10. CLONAZEPAM [Concomitant]
     Dates: start: 20100219
  11. ETIZOLAM [Concomitant]
     Dates: start: 20060201
  12. AMMONIUM GLYCYRRHIZINATE [Concomitant]
     Dosage: DRUG REPORTED AS MONOAMMONIUM GLYCYRRHIZINATE
     Dates: start: 20100224, end: 20100406
  13. AMMONIUM GLYCYRRHIZINATE [Concomitant]
     Dates: start: 20091215, end: 20100216

REACTIONS (1)
  - URINARY TRACT INFECTION [None]
